FAERS Safety Report 9868100 (Version 1)
Quarter: 2014Q1

REPORT INFORMATION
  Report Type: Spontaneous
  Country: SE (occurrence: SE)
  Receive Date: 20140204
  Receipt Date: 20140204
  Transmission Date: 20141002
  Serious: Yes (Other)
  Sender: FDA-Public Use
  Company Number: SE-MYLANLABS-2014S1002181

PATIENT
  Age: 77 Year
  Sex: Male

DRUGS (1)
  1. EPIPEN [Suspect]
     Indication: ANGIOEDEMA
     Dates: start: 20140117

REACTIONS (1)
  - Device failure [Recovered/Resolved]
